FAERS Safety Report 8829455 (Version 4)
Quarter: 2013Q1

REPORT INFORMATION
  Report Type: Spontaneous
  Country: US (occurrence: US)
  Receive Date: 20121008
  Receipt Date: 20130108
  Transmission Date: 20140127
  Serious: Yes (Hospitalization, Other)
  Sender: FDA-Public Use
  Company Number: US-PFIZER INC-2012244723

PATIENT
  Age: 11 Year
  Sex: Male
  Weight: 36 kg

DRUGS (4)
  1. XYNTHA [Suspect]
     Indication: FACTOR VIII DEFICIENCY
     Dosage: 1900 IU QOD
     Route: 042
     Dates: start: 20090429
  2. XYNTHA [Suspect]
     Dosage: 2200 IU, ALTERNATE DAY
     Route: 042
     Dates: start: 201006
  3. XYNTHA [Suspect]
     Dosage: 2268 IU, ALTERNATE DAY
     Route: 042
     Dates: start: 20120814
  4. XYNTHA [Suspect]
     Dosage: 2268 IU, ALTERNATE DAY
     Route: 042
     Dates: start: 20120814

REACTIONS (3)
  - Mesenteric vein thrombosis [Recovered/Resolved]
  - Aspartate aminotransferase increased [Unknown]
  - Alanine aminotransferase increased [Unknown]
